FAERS Safety Report 9990213 (Version 1)
Quarter: 2014Q1

REPORT INFORMATION
  Report Type: Report from Study
  Country: US (occurrence: US)
  Receive Date: 20140310
  Receipt Date: 20140310
  Transmission Date: 20141002
  Serious: No
  Sender: FDA-Public Use
  Company Number: US-ABBVIE-13P-163-1137013-00

PATIENT
  Age: 34 Year
  Sex: Male
  Weight: 70.37 kg

DRUGS (1)
  1. HUMIRA [Suspect]
     Indication: CROHN^S DISEASE
     Dosage: ONE TIME DOSE
     Route: 058
     Dates: start: 20130809, end: 20130818

REACTIONS (2)
  - Abdominal pain lower [Not Recovered/Not Resolved]
  - Musculoskeletal pain [Not Recovered/Not Resolved]
